FAERS Safety Report 14731028 (Version 1)
Quarter: 2018Q2

REPORT INFORMATION
  Report Type: Report from Study
  Country: None (occurrence: US)
  Receive Date: 20180406
  Receipt Date: 20180406
  Transmission Date: 20180711
  Serious: Yes (Other)
  Sender: FDA-Public Use
  Company Number: US-ABBVIE-18P-163-2312009-00

PATIENT
  Age: 46 Year
  Sex: Female

DRUGS (1)
  1. MAVYRET [Suspect]
     Active Substance: GLECAPREVIR\PIBRENTASVIR
     Indication: HEPATITIS C
     Route: 048
     Dates: start: 201803

REACTIONS (6)
  - Vomiting [Unknown]
  - Vision blurred [Unknown]
  - Abdominal tenderness [Unknown]
  - Balance disorder [Unknown]
  - Tonsillar inflammation [Unknown]
  - Nausea [Unknown]

NARRATIVE: CASE EVENT DATE: 20180315
